APPROVED DRUG PRODUCT: ETHOSUXIMIDE
Active Ingredient: ETHOSUXIMIDE
Strength: 250MG/5ML
Dosage Form/Route: SYRUP;ORAL
Application: A081306 | Product #001
Applicant: TEVA PHARMACEUTICALS USA
Approved: Jul 30, 1993 | RLD: No | RS: No | Type: DISCN